FAERS Safety Report 15728837 (Version 1)
Quarter: 2018Q4

REPORT INFORMATION
  Report Type: Spontaneous
  Country: IT (occurrence: IT)
  Receive Date: 20181217
  Receipt Date: 20181217
  Transmission Date: 20190205
  Serious: Yes (Death)
  Sender: FDA-Public Use
  Company Number: PHHY2018IT186041

PATIENT
  Age: 77 Year
  Sex: Male

DRUGS (4)
  1. LEVODOPA+CARBIDOPA [Suspect]
     Active Substance: CARBIDOPA\LEVODOPA
     Indication: PARKINSON^S DISEASE
     Dosage: 1500 MG, QD
     Route: 041
  2. SERTRALINE [Suspect]
     Active Substance: SERTRALINE HYDROCHLORIDE
     Indication: PRODUCT USED FOR UNKNOWN INDICATION
     Dosage: 50 MG, QD
     Route: 065
  3. PRAMIPEXOLE. [Suspect]
     Active Substance: PRAMIPEXOLE
     Indication: PARKINSON^S DISEASE
     Dosage: 1.05 MG, QD
     Route: 065
  4. AMANTADINE. [Suspect]
     Active Substance: AMANTADINE HYDROCHLORIDE
     Indication: PARKINSON^S DISEASE
     Dosage: 200 MG, QD
     Route: 065

REACTIONS (12)
  - Dyskinesia [Fatal]
  - Hepatic enzyme increased [Fatal]
  - Renal failure [Fatal]
  - Pneumonia [Fatal]
  - Multiple organ dysfunction syndrome [Fatal]
  - Parkinsonism hyperpyrexia syndrome [Fatal]
  - Cholecystitis [Fatal]
  - Leukocytosis [Fatal]
  - Blood creatine phosphokinase increased [Fatal]
  - Body temperature increased [Fatal]
  - Blood osmolarity increased [Fatal]
  - C-reactive protein increased [Fatal]

NARRATIVE: CASE EVENT DATE: 201507
